FAERS Safety Report 7496012-4 (Version None)
Quarter: 2011Q2

REPORT INFORMATION
  Report Type: 
  Country: None (occurrence: None)
  Receive Date: 20110523
  Receipt Date: 20100728
  Transmission Date: 20111010
  Serious: No
  Sender: FDA-Public Use
  Company Number: US-PFIZER INC-2010094595

PATIENT
  Age: 56 Year
  Sex: Female

DRUGS (3)
  1. FLAGYL [Suspect]
     Indication: VAGINAL INFECTION
     Dosage: UNK
     Dates: start: 20100513, end: 20100523
  2. NIASPAN [Suspect]
     Indication: BLOOD CHOLESTEROL INCREASED
     Dosage: 500 MG, 1X/DAY
     Dates: start: 20100513
  3. SIMVASTATIN [Concomitant]
     Indication: BLOOD CHOLESTEROL INCREASED
     Dosage: 20 MG, 1X/DAY
     Dates: start: 20100513

REACTIONS (1)
  - DYSGEUSIA [None]
